FAERS Safety Report 6094123-1 (Version None)
Quarter: 2009Q1

REPORT INFORMATION
  Report Type: 
  Country: None (occurrence: None)
  Receive Date: 20090226
  Receipt Date: 20090213
  Transmission Date: 20090719
  Serious: Yes (Other)
  Sender: FDA-Public Use
  Company Number: JP-ROCHE-611835

PATIENT
  Sex: Male
  Weight: 22 kg

DRUGS (4)
  1. TAMIFLU [Suspect]
     Indication: INFLUENZA
     Route: 048
     Dates: start: 20090120, end: 20090123
  2. TAMIFLU [Suspect]
     Dosage: DOSE DECREASED
     Route: 048
     Dates: start: 20090124, end: 20090124
  3. BROMHEXINE HYDROCHLORIDE [Concomitant]
     Dosage: DRUG REPORTED AS FULPEN
     Route: 048
     Dates: start: 20090122, end: 20090126
  4. ASVERIN [Concomitant]
     Route: 048
     Dates: start: 20090122, end: 20090126

REACTIONS (4)
  - ABNORMAL BEHAVIOUR [None]
  - AGITATION [None]
  - HALLUCINATION, VISUAL [None]
  - MOOD ALTERED [None]
